FAERS Safety Report 9866902 (Version 1)
Quarter: 2014Q1

REPORT INFORMATION
  Report Type: Spontaneous
  Country: US (occurrence: None)
  Receive Date: 20140203
  Receipt Date: 20140203
  Transmission Date: 20141002
  Serious: No
  Sender: FDA-Public Use
  Company Number: None

PATIENT
  Age: 58 Week
  Sex: Male
  Weight: 88 kg

DRUGS (1)
  1. MORPHINE SULPHATE [Suspect]
     Indication: INTERVERTEBRAL DISC DEGENERATION
     Dosage: 30MG, 3 TIME A DAY, 15MG.2 TIME?THREE TIMES DAILY?TAKEN BY MOUTH
     Route: 048
     Dates: start: 19981112, end: 20140130

REACTIONS (1)
  - Road traffic accident [None]
